FAERS Safety Report 4762178-X (Version None)
Quarter: 2005Q3

REPORT INFORMATION
  Report Type: 
  Country: None (occurrence: None)
  Receive Date: 20050906
  Receipt Date: 20050906
  Transmission Date: 20060218
  Serious: Yes (Hospitalization)
  Sender: FDA-Public Use
  Company Number: None

PATIENT
  Sex: Female
  Weight: 63.05 kg

DRUGS (2)
  1. TOPOTECAN 0.6 MG /M2 /DAYS 1-5 [Suspect]
     Indication: CERVIX CARCINOMA
     Dosage: 0.98 MG/DAY 1-5, IV
     Route: 042
     Dates: start: 20050808, end: 20050812
  2. CISPLATIN [Suspect]
     Dosage: 82 MG/DAY-5, IV
     Route: 042
     Dates: start: 20050812

REACTIONS (4)
  - CONSTIPATION [None]
  - HAEMOGLOBIN DECREASED [None]
  - HYDRONEPHROSIS [None]
  - URINARY TRACT INFECTION [None]
